FAERS Safety Report 13166508 (Version 1)
Quarter: 2017Q1

REPORT INFORMATION
  Report Type: Spontaneous
  Country: US (occurrence: US)
  Receive Date: 20170126
  Receipt Date: 20170126
  Transmission Date: 20170428
  Serious: Yes (Other)
  Sender: FDA-Public Use
  Company Number: None

PATIENT

DRUGS (1)
  1. XIIDRA [Suspect]
     Active Substance: LIFITEGRAST
     Indication: DRY EYE
     Dates: start: 20161201, end: 20170105

REACTIONS (4)
  - Product taste abnormal [None]
  - Retching [None]
  - Nausea [None]
  - Asthenopia [None]

NARRATIVE: CASE EVENT DATE: 20161222
